FAERS Safety Report 9902074 (Version 3)
Quarter: 2014Q1

REPORT INFORMATION
  Report Type: Spontaneous
  Country: GR (occurrence: GR)
  Receive Date: 20140217
  Receipt Date: 20140317
  Transmission Date: 20141002
  Serious: Yes (Hospitalization)
  Sender: FDA-Public Use
  Company Number: PHHY2014GR017684

PATIENT
  Age: 13 Year
  Sex: Female

DRUGS (2)
  1. ILARIS [Suspect]
     Indication: TUMOUR NECROSIS FACTOR RECEPTOR-ASSOCIATED PERIODIC SYNDROME
     Dosage: 150 MG, MONTHLY
     Route: 058
     Dates: start: 201211
  2. ILARIS [Suspect]
     Indication: OFF LABEL USE

REACTIONS (2)
  - Staphylococcal infection [Recovering/Resolving]
  - Impetigo [Recovering/Resolving]
